FAERS Safety Report 5338324-6 (Version None)
Quarter: 2007Q2

REPORT INFORMATION
  Report Type: 
  Country: None (occurrence: None)
  Receive Date: 20070405
  Receipt Date: 20061113
  Transmission Date: 20071010
  Serious: No
  Sender: FDA-Public Use
  Company Number: US200611002393

PATIENT
  Age: 43 Year
  Sex: Female

DRUGS (5)
  1. CYMBALTA [Suspect]
     Indication: DEPRESSION
     Dosage: 30 MG, 2/D, ORAL
     Route: 048
     Dates: start: 20061001
  2. TOPAMAX/AUS/(TOPIRAMATE) [Concomitant]
  3. KEPPRA USA [Concomitant]
  4. LEVETIRACETAM [Concomitant]
  5. PREMARIN [Concomitant]

REACTIONS (2)
  - DEPRESSION [None]
  - SUICIDAL IDEATION [None]
